FAERS Safety Report 20780779 (Version 1)
Quarter: 2022Q2

REPORT INFORMATION
  Report Type: Spontaneous
  Country: CA (occurrence: CA)
  Receive Date: 20220504
  Receipt Date: 20220504
  Transmission Date: 20220720
  Serious: Yes (Hospitalization)
  Sender: FDA-Public Use
  Company Number: CA-JNJFOC-20220458018

PATIENT
  Age: 73 Year
  Sex: Male
  Weight: 78 kg

DRUGS (13)
  1. REMICADE [Suspect]
     Active Substance: INFLIXIMAB
     Indication: Colitis ulcerative
     Route: 042
  2. CALCIUM DPANTOTHENATE/NICOTIN AMIDE/PYRIDOXINE HYDROCHLORIDE/RIBOFL AV [Concomitant]
  3. CETIRIZINE HYDROCHLORIDE [Concomitant]
     Active Substance: CETIRIZINE HYDROCHLORIDE
  4. ERGOCALCIFEROL [Concomitant]
     Active Substance: ERGOCALCIFEROL
  5. GABAPENTIN [Concomitant]
     Active Substance: GABAPENTIN
  6. IRON [Concomitant]
     Active Substance: IRON
  7. LANTUS [Concomitant]
     Active Substance: INSULIN GLARGINE
     Route: 058
  8. LOPERAMIDE HYDROCHLORIDE [Concomitant]
     Active Substance: LOPERAMIDE HYDROCHLORIDE
     Dosage: 250 MICROGRAM
  9. LYRICA [Concomitant]
     Active Substance: PREGABALIN
  10. METOPROLOL [Concomitant]
     Active Substance: METOPROLOL
     Route: 048
  11. PLANTAGO INDICA [Concomitant]
  12. TYLENOL [Concomitant]
     Active Substance: ACETAMINOPHEN
  13. VITAMIN B12 [Concomitant]
     Active Substance: CYANOCOBALAMIN

REACTIONS (3)
  - Constipation [Unknown]
  - Intentional product use issue [Unknown]
  - Off label use [Unknown]
